FAERS Safety Report 11078330 (Version 2)
Quarter: 2015Q2

REPORT INFORMATION
  Report Type: Spontaneous
  Country: US (occurrence: US)
  Receive Date: 20150430
  Receipt Date: 20150515
  Transmission Date: 20150821
  Serious: Yes (Death, Other)
  Sender: FDA-Public Use
  Company Number: US-JAZZ-2015-US-006187

PATIENT
  Age: 46 Year
  Sex: Male

DRUGS (1)
  1. FAZACLO [Suspect]
     Active Substance: CLOZAPINE
     Dosage: 150-300 MG DAILY
     Route: 048
     Dates: start: 20120115, end: 20140904

REACTIONS (3)
  - Toxicity to various agents [Fatal]
  - Neuroleptic malignant syndrome [Fatal]
  - Exposure to extreme temperature [Unknown]

NARRATIVE: CASE EVENT DATE: 20140914
